FAERS Safety Report 10009518 (Version 1)
Quarter: 2014Q1

REPORT INFORMATION
  Report Type: Spontaneous
  Country: US (occurrence: US)
  Receive Date: 20140312
  Receipt Date: 20140312
  Transmission Date: 20141002
  Serious: No
  Sender: FDA-Public Use
  Company Number: US-INCYTE CORPORATION-2012IN001872

PATIENT
  Age: 87 Year
  Sex: Female

DRUGS (16)
  1. JAKAFI [Suspect]
     Indication: MYELOFIBROSIS
     Dosage: 10 MG, BID
     Route: 048
     Dates: end: 2012
  2. ATIVAN [Concomitant]
  3. ALTACE [Concomitant]
  4. CARDIZEM [Concomitant]
     Dosage: 240 MG, UNK
  5. CENTRUM SILVER [Concomitant]
  6. COREG [Concomitant]
  7. DEXALONE [Concomitant]
     Dosage: 60 MG, UNK
  8. FOLIC ACID [Concomitant]
  9. MECLIZINE HYDROCHLORIDE [Concomitant]
  10. RESTASIS [Concomitant]
  11. SPIRONOLACTONE [Concomitant]
  12. SYNTHROID [Concomitant]
  13. TEKTURNA [Concomitant]
     Dosage: 150 MG, UNK
  14. TUMS [Concomitant]
  15. TYLENOL [Concomitant]
  16. VITAMIN D [Concomitant]

REACTIONS (2)
  - Asthenia [Unknown]
  - Anaemia [Unknown]
